FAERS Safety Report 8846548 (Version 2)
Quarter: 2012Q4

REPORT INFORMATION
  Report Type: 
  Country: US (occurrence: US)
  Receive Date: 20121017
  Receipt Date: 20121116
  Transmission Date: 20130627
  Serious: Yes (Other)
  Sender: FDA-Public Use
  Company Number: US-GLAXOSMITHKLINE-A0997717A

PATIENT
  Age: 29 Year
  Sex: Female

DRUGS (1)
  1. FLOLAN [Suspect]
     Indication: PRODUCT USED FOR UNKNOWN INDICATION
     Dosage: 20NGKM Continuous
     Route: 042
     Dates: start: 20111001

REACTIONS (5)
  - Hypoxia [Unknown]
  - Amnesia [Unknown]
  - Drug administration error [Unknown]
  - Underdose [Unknown]
  - Flushing [Unknown]
